FAERS Safety Report 14382698 (Version 1)
Quarter: 2018Q1

REPORT INFORMATION
  Report Type: Report from Study
  Country: US (occurrence: US)
  Receive Date: 20180112
  Receipt Date: 20180112
  Transmission Date: 20180509
  Serious: No
  Sender: FDA-Public Use
  Company Number: PHEH2018US001689

PATIENT
  Age: 52 Year
  Sex: Female

DRUGS (2)
  1. COSENTYX [Suspect]
     Active Substance: SECUKINUMAB
     Indication: PSORIASIS
     Dosage: 150 MG, QMO
     Route: 058
     Dates: start: 20171103
  2. COSENTYX [Suspect]
     Active Substance: SECUKINUMAB
     Dosage: 300 MG, QMO
     Route: 030

REACTIONS (5)
  - Speech disorder [Unknown]
  - Inappropriate schedule of drug administration [Unknown]
  - Oropharyngeal pain [Unknown]
  - Incorrect route of drug administration [Unknown]
  - Dysphonia [Unknown]

NARRATIVE: CASE EVENT DATE: 20180109
